FAERS Safety Report 7101135-5 (Version None)
Quarter: 2010Q4

REPORT INFORMATION
  Report Type: 
  Country: None (occurrence: None)
  Receive Date: 20101105
  Receipt Date: 20101025
  Transmission Date: 20110411
  Serious: Yes (Hospitalization, Other)
  Sender: FDA-Public Use
  Company Number: 2010P1002242

PATIENT
  Age: 72 Year
  Sex: Male

DRUGS (3)
  1. ROPINIROLE [Suspect]
     Indication: PARKINSON'S DISEASE
     Dosage: 15 MG;QD;PO
     Route: 048
  2. LEVODOPA [Concomitant]
  3. PREV MEDS [Concomitant]

REACTIONS (12)
  - AORTIC ANEURYSM [None]
  - BETA 2 MICROGLOBULIN INCREASED [None]
  - BIOPSY BONE MARROW ABNORMAL [None]
  - BLOOD FIBRINOGEN INCREASED [None]
  - BLOOD IMMUNOGLOBULIN A INCREASED [None]
  - C-REACTIVE PROTEIN INCREASED [None]
  - GLOBULINS INCREASED [None]
  - NORMOCHROMIC NORMOCYTIC ANAEMIA [None]
  - PYREXIA [None]
  - RED BLOOD CELL SEDIMENTATION RATE INCREASED [None]
  - SERUM FERRITIN INCREASED [None]
  - SOFT TISSUE INFLAMMATION [None]
